FAERS Safety Report 11827086 (Version 1)
Quarter: 2015Q4

REPORT INFORMATION
  Report Type: Spontaneous
  Country: GR (occurrence: GR)
  Receive Date: 20151211
  Receipt Date: 20151211
  Transmission Date: 20160305
  Serious: Yes (Other)
  Sender: FDA-Public Use
  Company Number: GR-SA-2015SA205553

PATIENT
  Age: 50 Year
  Sex: Female

DRUGS (13)
  1. 5-FU [Suspect]
     Active Substance: FLUOROURACIL
     Indication: INVASIVE DUCTAL BREAST CARCINOMA
     Route: 065
  2. EXEMESTANE. [Suspect]
     Active Substance: EXEMESTANE
     Indication: INVASIVE DUCTAL BREAST CARCINOMA
     Dosage: FREQUENCY: 4 CYCLES
     Route: 065
  3. AFINITOR [Suspect]
     Active Substance: EVEROLIMUS
     Indication: INVASIVE DUCTAL BREAST CARCINOMA
     Route: 065
     Dates: start: 201405
  4. PACLITAXEL. [Suspect]
     Active Substance: PACLITAXEL
     Indication: INVASIVE DUCTAL BREAST CARCINOMA
     Route: 065
     Dates: start: 201503
  5. TAMOXIFEN CITRATE. [Suspect]
     Active Substance: TAMOXIFEN CITRATE
     Indication: INVASIVE DUCTAL BREAST CARCINOMA
     Route: 065
  6. CAPECITABINE. [Suspect]
     Active Substance: CAPECITABINE
     Indication: INVASIVE DUCTAL BREAST CARCINOMA
     Route: 065
     Dates: start: 201508
  7. LETROZOLE. [Suspect]
     Active Substance: LETROZOLE
     Indication: INVASIVE DUCTAL BREAST CARCINOMA
     Route: 065
     Dates: start: 201312
  8. TAXOTERE [Suspect]
     Active Substance: DOCETAXEL
     Indication: INVASIVE DUCTAL BREAST CARCINOMA
     Dosage: FREQUENCY: 4 CYCLES
     Route: 065
  9. DOXORUBICIN HYDROCHLORIDE. [Suspect]
     Active Substance: DOXORUBICIN HYDROCHLORIDE
     Indication: INVASIVE DUCTAL BREAST CARCINOMA
     Dosage: FREEQUENCY: 4 CYCLES
     Route: 065
  10. CYCLOPHOSPHAMIDE. [Suspect]
     Active Substance: CYCLOPHOSPHAMIDE
     Indication: INVASIVE DUCTAL BREAST CARCINOMA
     Dosage: FREQUENCY: 4 CYCLES.
     Route: 065
  11. DENOSUMAB [Suspect]
     Active Substance: DENOSUMAB
     Indication: INVASIVE DUCTAL BREAST CARCINOMA
     Route: 065
     Dates: start: 2014
  12. EPIRUBICIN HYDROCHLORIDE. [Suspect]
     Active Substance: EPIRUBICIN HYDROCHLORIDE
     Indication: INVASIVE DUCTAL BREAST CARCINOMA
     Dosage: FREQUENCY:
     Route: 065
     Dates: start: 201405
  13. AVASTIN [Suspect]
     Active Substance: BEVACIZUMAB
     Indication: INVASIVE DUCTAL BREAST CARCINOMA
     Route: 065
     Dates: start: 201503

REACTIONS (2)
  - Disease progression [Unknown]
  - Invasive ductal breast carcinoma [Unknown]
